FAERS Safety Report 23937183 (Version 3)
Quarter: 2024Q2

REPORT INFORMATION
  Report Type: Spontaneous
  Country: IL (occurrence: IL)
  Receive Date: 20240604
  Receipt Date: 20240628
  Transmission Date: 20240716
  Serious: Yes (Other)
  Sender: FDA-Public Use
  Company Number: IL-TERSERA THERAPEUTICS LLC-2023TRS003770

PATIENT

DRUGS (3)
  1. XERMELO [Suspect]
     Active Substance: TELOTRISTAT ETHYL
     Indication: Neuroendocrine tumour
     Dosage: 250 MG, BID (EVERY 12 HOUR)
     Route: 048
     Dates: start: 20230607
  2. XERMELO [Suspect]
     Active Substance: TELOTRISTAT ETHYL
     Dosage: 250 MG, Q8H (EACH 8 HR)
     Route: 048
     Dates: start: 20230809
  3. XERMELO [Suspect]
     Active Substance: TELOTRISTAT ETHYL
     Dosage: 250 MG, Q8H (EACH 8 HR)
     Route: 048

REACTIONS (4)
  - Pancreatic carcinoma metastatic [Not Recovered/Not Resolved]
  - Diarrhoea [Not Recovered/Not Resolved]
  - Back pain [Not Recovered/Not Resolved]
  - Pain [Not Recovered/Not Resolved]

NARRATIVE: CASE EVENT DATE: 20230724
